FAERS Safety Report 7904316-3 (Version None)
Quarter: 2011Q4

REPORT INFORMATION
  Report Type: 
  Country: None (occurrence: None)
  Receive Date: 20111109
  Receipt Date: 20111102
  Transmission Date: 20120403
  Serious: Yes (Hospitalization)
  Sender: FDA-Public Use
  Company Number: US-ACTELION-A-US2011-56536

PATIENT

DRUGS (2)
  1. TRACLEER [Suspect]
     Indication: PULMONARY ARTERIAL HYPERTENSION
     Dosage: UNK
     Route: 048
     Dates: start: 20100729
  2. CALCIUM CHANNEL BLOCKERS [Concomitant]

REACTIONS (4)
  - FATIGUE [None]
  - OEDEMA [None]
  - ASTHMA [None]
  - CHEST PAIN [None]
